FAERS Safety Report 19816222 (Version 1)
Quarter: 2021Q3

REPORT INFORMATION
  Report Type: Spontaneous
  Country: US (occurrence: US)
  Receive Date: 20210909
  Receipt Date: 20210909
  Transmission Date: 20211014
  Serious: No
  Sender: FDA-Public Use
  Company Number: US-BRECKENRIDGE PHARMACEUTICAL, INC.-2118219

PATIENT
  Age: 79 Year
  Sex: Female
  Weight: 68.18 kg

DRUGS (1)
  1. ASENAPINE. [Suspect]
     Active Substance: ASENAPINE
     Indication: MOOD ALTERED
     Route: 060

REACTIONS (3)
  - Product blister packaging issue [Unknown]
  - Product solubility abnormal [Unknown]
  - Tongue discomfort [Recovered/Resolved]
